FAERS Safety Report 5844213-0 (Version None)
Quarter: 2008Q3

REPORT INFORMATION
  Report Type: 
  Country: None (occurrence: None)
  Receive Date: 20080813
  Receipt Date: 20080801
  Transmission Date: 20090109
  Serious: Yes (Other)
  Sender: FDA-Public Use
  Company Number: US-PFIZER INC-2008057098

PATIENT
  Sex: Female

DRUGS (11)
  1. CHANTIX [Suspect]
     Indication: SMOKING CESSATION THERAPY
  2. SYNTHROID [Concomitant]
  3. PERCOCET [Concomitant]
  4. MORPHINE [Concomitant]
  5. CELEXA [Concomitant]
  6. XANAX [Concomitant]
  7. TRAZODONE HCL [Concomitant]
  8. RITALIN [Concomitant]
  9. DONNATAL [Concomitant]
  10. VITAMIN B-12 [Concomitant]
  11. VITAMIN TAB [Concomitant]

REACTIONS (1)
  - DEPRESSION [None]
